FAERS Safety Report 4622475-5 (Version None)
Quarter: 2005Q1

REPORT INFORMATION
  Report Type: 
  Country: None (occurrence: None)
  Receive Date: 20050317
  Receipt Date: 20040707
  Transmission Date: 20050727
  Serious: Yes (Other)
  Sender: FDA-Public Use
  Company Number: PHEH2004US04712

PATIENT
  Age: 10 Year
  Sex: Male
  Weight: 38.1 kg

DRUGS (1)
  1. TRILEPTAL [Suspect]
     Indication: PARTIAL SEIZURES
     Dosage: 300 MG, BID, ORAL
     Route: 048
     Dates: start: 20040412, end: 20040428

REACTIONS (8)
  - ALANINE AMINOTRANSFERASE INCREASED [None]
  - ASPARTATE AMINOTRANSFERASE INCREASED [None]
  - HYPERSENSITIVITY [None]
  - LIVER FUNCTION TEST ABNORMAL [None]
  - NEUTROPHIL COUNT DECREASED [None]
  - PYREXIA [None]
  - RASH [None]
  - WHITE BLOOD CELL COUNT DECREASED [None]
